FAERS Safety Report 8618998-4 (Version None)
Quarter: 2012Q3

REPORT INFORMATION
  Report Type: 
  Country: None (occurrence: None)
  Receive Date: 20120824
  Receipt Date: 20120821
  Transmission Date: 20120928
  Serious: Yes (Other)
  Sender: FDA-Public Use
  Company Number: PHFR2012GB004628

PATIENT
  Age: 55 Year
  Sex: Female

DRUGS (4)
  1. DIURETICS [Concomitant]
  2. METFORMIN HCL [Concomitant]
  3. TASIGNA [Suspect]
     Indication: CHRONIC MYELOID LEUKAEMIA
     Dosage: 400 MG, BID
     Route: 048
     Dates: start: 20110421
  4. ACE INHIBITOR NOS [Concomitant]

REACTIONS (4)
  - RENAL TUBULAR DISORDER [None]
  - BLOOD CREATININE INCREASED [None]
  - RENAL INJURY [None]
  - RENAL FAILURE [None]
